FAERS Safety Report 9843584 (Version 1)
Quarter: 2013Q4

REPORT INFORMATION
  Report Type: Spontaneous
  Country: US (occurrence: None)
  Receive Date: 20131223
  Receipt Date: 20131223
  Transmission Date: 20140711
  Serious: Yes (Other)
  Sender: FDA-Public Use
  Company Number: 221783LEO

PATIENT
  Sex: Female

DRUGS (2)
  1. PICATO (0.015 %, GEL) [Suspect]
     Indication: ACTINIC KERATOSIS
     Dosage: (1 TUBE PER DAY), DERMAL
     Dates: start: 20130507, end: 20130508
  2. ESTRADIOL (ESTRADIOL) (GEL) [Concomitant]

REACTIONS (7)
  - Application site erythema [None]
  - Application site pain [None]
  - Application site swelling [None]
  - Application site vesicles [None]
  - Headache [None]
  - Dehydration [None]
  - Incorrect drug administration duration [None]
